FAERS Safety Report 20162286 (Version 2)
Quarter: 2022Q1

REPORT INFORMATION
  Report Type: Report from Study
  Country: US (occurrence: US)
  Receive Date: 20211208
  Receipt Date: 20220113
  Transmission Date: 20220424
  Serious: Yes (Other)
  Sender: FDA-Public Use
  Company Number: US-REGENERON PHARMACEUTICALS, INC.-2021-109813

PATIENT
  Sex: Female

DRUGS (1)
  1. CASIRIVIMAB\IMDEVIMAB [Suspect]
     Active Substance: CASIRIVIMAB\IMDEVIMAB
     Indication: COVID-19
     Dosage: UNK, SINGLE
     Route: 042
     Dates: start: 20210917, end: 20210917

REACTIONS (8)
  - Hallucination, visual [Unknown]
  - Feeling abnormal [Unknown]
  - Paranoia [Unknown]
  - Insomnia [Unknown]
  - Panic attack [Unknown]
  - Obsessive-compulsive disorder [Unknown]
  - Intrusive thoughts [Unknown]
  - Psychotic disorder [Unknown]

NARRATIVE: CASE EVENT DATE: 20210917
